FAERS Safety Report 9295166 (Version 2)
Quarter: 2013Q2

REPORT INFORMATION
  Report Type: Spontaneous
  Country: US (occurrence: US)
  Receive Date: 20130517
  Receipt Date: 20130618
  Transmission Date: 20140414
  Serious: No
  Sender: FDA-Public Use
  Company Number: US-009507513-1305USA008233

PATIENT
  Sex: Male

DRUGS (3)
  1. PEG-INTRON [Suspect]
     Indication: HEPATITIS C
     Dosage: UNK, REDIPEN
     Dates: start: 20130311, end: 20130529
  2. REBETOL [Suspect]
     Indication: HEPATITIS C
     Dosage: UNK
     Route: 048
     Dates: start: 20130311, end: 20130329
  3. VICTRELIS [Suspect]
     Indication: HEPATITIS C
     Dosage: REDIPEN
     Route: 048
     Dates: start: 20130411, end: 20130529

REACTIONS (29)
  - Blister [Not Recovered/Not Resolved]
  - Abdominal distension [Unknown]
  - Respiratory disorder [Unknown]
  - Dysphagia [Unknown]
  - Rash [Not Recovered/Not Resolved]
  - Decreased appetite [Unknown]
  - Abdominal pain [Unknown]
  - Dyspnoea [Unknown]
  - Chest pain [Unknown]
  - Rash [Unknown]
  - Skin disorder [Unknown]
  - Influenza like illness [Unknown]
  - Dizziness [Unknown]
  - Fatigue [Unknown]
  - Decreased appetite [Unknown]
  - Dysgeusia [Unknown]
  - Blister [Unknown]
  - Dehydration [Unknown]
  - Gastrointestinal disorder [Unknown]
  - Insomnia [Unknown]
  - Dysphagia [Unknown]
  - Oesophagitis [Unknown]
  - Oral pain [Unknown]
  - Headache [Unknown]
  - Nausea [Unknown]
  - Dyspnoea [Unknown]
  - Pruritus [Unknown]
  - Blister [Unknown]
  - Skin ulcer [Unknown]
